FAERS Safety Report 14912497 (Version 2)
Quarter: 2018Q2

REPORT INFORMATION
  Report Type: Spontaneous
  Country: IT (occurrence: IT)
  Receive Date: 20180518
  Receipt Date: 20180518
  Transmission Date: 20180711
  Serious: Yes (Other)
  Sender: FDA-Public Use
  Company Number: IT-JNJFOC-20180507124

PATIENT
  Age: 45 Year
  Sex: Male

DRUGS (2)
  1. IBUPROFEN. [Suspect]
     Active Substance: IBUPROFEN
     Indication: ARTHRALGIA
     Dosage: CUMULATIVE DOSE TO FIRST REACTION: 1 DOSAGE FORMIN TOTAL.
     Route: 048
     Dates: start: 20180413, end: 20180413
  2. IBUPROFEN. [Suspect]
     Active Substance: IBUPROFEN
     Route: 048

REACTIONS (2)
  - Lip oedema [Unknown]
  - Erythema [Unknown]

NARRATIVE: CASE EVENT DATE: 20180413
